FAERS Safety Report 5023113-2 (Version None)
Quarter: 2006Q2

REPORT INFORMATION
  Report Type: 
  Country: None (occurrence: None)
  Receive Date: 20060428
  Receipt Date: 20060322
  Transmission Date: 20061013
  Serious: Yes (Other)
  Sender: FDA-Public Use
  Company Number: 012188

PATIENT
  Sex: Female

DRUGS (3)
  1. PRIALT [Suspect]
     Indication: BACK PAIN
     Dosage: SEE IMAGE
     Route: 039
     Dates: start: 20050601, end: 20060201
  2. PRIALT [Suspect]
     Indication: BACK PAIN
     Dosage: SEE IMAGE
     Route: 039
     Dates: start: 20060201
  3. HYDROMORPHONE HCL [Concomitant]

REACTIONS (7)
  - ASTHENIA [None]
  - CONVULSION [None]
  - ELECTROLYTE IMBALANCE [None]
  - FACE OEDEMA [None]
  - HYPOAESTHESIA [None]
  - OEDEMA PERIPHERAL [None]
  - PARAESTHESIA [None]
